FAERS Safety Report 5127405-8 (Version None)
Quarter: 2006Q4

REPORT INFORMATION
  Report Type: 
  Country: None (occurrence: None)
  Receive Date: 20061012
  Receipt Date: 20061012
  Transmission Date: 20070319
  Serious: Yes (Other)
  Sender: FDA-Public Use
  Company Number: None

PATIENT
  Age: 73 Year
  Sex: Male
  Weight: 90.7194 kg

DRUGS (1)
  1. OXYCODONE AND ACETAMINOPHEN [Suspect]
     Indication: PROCEDURAL PAIN
     Dosage: ONE CAPSULE 4-6 HRS AS NEEDED P.O.
     Route: 048
     Dates: start: 20060829

REACTIONS (2)
  - PHARMACEUTICAL PRODUCT COUNTERFEIT [None]
  - THERAPEUTIC PRODUCT INEFFECTIVE [None]
